FAERS Safety Report 16443006 (Version 4)
Quarter: 2020Q4

REPORT INFORMATION
  Report Type: Report from Study
  Country: PA (occurrence: PA)
  Receive Date: 20190617
  Receipt Date: 20201001
  Transmission Date: 20210113
  Serious: Yes (Death, Hospitalization, Other)
  Sender: FDA-Public Use
  Company Number: PHHY2019PA135417

PATIENT
  Age: 64 Year
  Sex: Male
  Weight: 88.44 kg

DRUGS (5)
  1. LOMOTIL [Concomitant]
     Active Substance: ATROPINE SULFATE\DIPHENOXYLATE HYDROCHLORIDE
     Indication: PRODUCT USED FOR UNKNOWN INDICATION
     Dosage: UNK
     Route: 065
  2. SANDOSTATIN LAR DEPOT [Suspect]
     Active Substance: OCTREOTIDE ACETATE
     Indication: GASTROINTESTINAL CARCINOMA
     Dosage: 20 MG, UNK
     Route: 065
     Dates: start: 20181123
  3. LOPERIN [Concomitant]
     Indication: PRODUCT USED FOR UNKNOWN INDICATION
     Dosage: 1 DF, QD
     Route: 065
  4. SANDOSTATIN LAR DEPOT [Suspect]
     Active Substance: OCTREOTIDE ACETATE
     Dosage: 20 MG, UNK
     Route: 065
     Dates: start: 20181201, end: 20200106
  5. SANDOSTATIN LAR DEPOT [Suspect]
     Active Substance: OCTREOTIDE ACETATE

REACTIONS (13)
  - Weight decreased [Unknown]
  - Asthenia [Unknown]
  - Tachycardia [Recovering/Resolving]
  - Dizziness [Unknown]
  - Fatigue [Unknown]
  - Infarction [Fatal]
  - Intestinal prolapse [Unknown]
  - Haemorrhage [Unknown]
  - Depressed mood [Unknown]
  - Arterial occlusive disease [Unknown]
  - Malaise [Unknown]
  - Head discomfort [Unknown]
  - Internal hernia [Unknown]

NARRATIVE: CASE EVENT DATE: 20200401
